FAERS Safety Report 10949174 (Version 1)
Quarter: 2015Q1

REPORT INFORMATION
  Report Type: Spontaneous
  Country: MK (occurrence: MK)
  Receive Date: 20150324
  Receipt Date: 20150324
  Transmission Date: 20150721
  Serious: Yes (Death, Other)
  Sender: FDA-Public Use
  Company Number: MK-CELGENE-236-20785-14080581

PATIENT

DRUGS (5)
  1. THALIDOMIDE [Suspect]
     Active Substance: THALIDOMIDE
     Route: 065
  2. MELPHALAN [Concomitant]
     Active Substance: MELPHALAN
     Indication: PLASMA CELL MYELOMA
     Route: 065
  3. THALIDOMIDE [Suspect]
     Active Substance: THALIDOMIDE
     Indication: PLASMA CELL MYELOMA
     Route: 065
  4. DEXAMETHASONE. [Concomitant]
     Active Substance: DEXAMETHASONE
     Indication: PLASMA CELL MYELOMA
     Route: 065
  5. CYCLOPHOSPHAMIDE. [Concomitant]
     Active Substance: CYCLOPHOSPHAMIDE
     Indication: PLASMA CELL MYELOMA
     Route: 065

REACTIONS (15)
  - Cerebrovascular accident [Unknown]
  - Joint swelling [Unknown]
  - IIIrd nerve paresis [Unknown]
  - VIth nerve paresis [Unknown]
  - Pulmonary embolism [Fatal]
  - Constipation [Unknown]
  - Neuropathy peripheral [Unknown]
  - Bladder cancer [Unknown]
  - Deep vein thrombosis [Unknown]
  - Drug intolerance [Unknown]
  - Epilepsy [Unknown]
  - Hepatitis B [Unknown]
  - Vomiting [Unknown]
  - Death [Fatal]
  - Superior sagittal sinus thrombosis [Fatal]
